FAERS Safety Report 4349282-5 (Version None)
Quarter: 2004Q2

REPORT INFORMATION
  Report Type: 
  Country: None (occurrence: None)
  Receive Date: 20040427
  Receipt Date: 20030429
  Transmission Date: 20050107
  Serious: No
  Sender: FDA-Public Use
  Company Number: 000531

PATIENT
  Age: 50 Year
  Sex: Male

DRUGS (4)
  1. ZEVALIN [Suspect]
     Indication: NON-HODGKIN'S LYMPHOMA
     Dosage: 250 MG, SINGLE RITUXAN DOSE 1, INTRAVENOUS
     Route: 042
     Dates: start: 20030305, end: 20030305
  2. ZEVALIN [Suspect]
     Indication: NON-HODGKIN'S LYMPHOMA
     Dosage: SINGLE, IN-[111] ZEVALIN, INTRAVENOUS
     Route: 042
     Dates: start: 20030305, end: 20030305
  3. ZEVALIN [Suspect]
     Indication: NON-HODGKIN'S LYMPHOMA
     Dosage: 250 MG, SINGLE, RITUXAN DOSE 2, INTRAVENOUS
     Route: 042
     Dates: start: 20030319, end: 20030319
  4. ZEVALIN [Suspect]
     Indication: NON-HODGKIN'S LYMPHOMA
     Dosage: 32.5 MCI, SINGLE, Y-[90] ZEVALIN, INTRAVENOUS
     Route: 042
     Dates: start: 20030319, end: 20030319

REACTIONS (1)
  - VIRAL UPPER RESPIRATORY TRACT INFECTION [None]
